FAERS Safety Report 9784564 (Version 2)
Quarter: 2014Q1

REPORT INFORMATION
  Report Type: Report from Study
  Country: CA (occurrence: CA)
  Receive Date: 20131226
  Receipt Date: 20140324
  Transmission Date: 20141002
  Serious: Yes (Disabling, Other)
  Sender: FDA-Public Use
  Company Number: CA-ABBVIE-13P-028-1181635-00

PATIENT
  Sex: Female
  Weight: 81.72 kg

DRUGS (7)
  1. HUMIRA [Suspect]
     Indication: CROHN^S DISEASE
     Route: 058
     Dates: start: 20090808, end: 201001
  2. HUMIRA [Suspect]
     Dates: end: 20140301
  3. IMURAN [Concomitant]
     Indication: CROHN^S DISEASE
     Route: 048
     Dates: start: 2012
  4. PREVACID [Concomitant]
     Indication: GASTROOESOPHAGEAL REFLUX DISEASE
     Route: 048
  5. WELBUTRIN [Concomitant]
     Indication: DEPRESSION
     Route: 048
  6. IMODIUM [Concomitant]
     Indication: CROHN^S DISEASE
     Route: 048
  7. PURINETOL [Concomitant]
     Indication: CROHN^S DISEASE
     Route: 048
     Dates: end: 2012

REACTIONS (8)
  - Intestinal stenosis [Recovered/Resolved]
  - Ulcer [Not Recovered/Not Resolved]
  - Crohn^s disease [Not Recovered/Not Resolved]
  - Arthralgia [Not Recovered/Not Resolved]
  - Loss of employment [Unknown]
  - Abdominal pain upper [Not Recovered/Not Resolved]
  - Drug ineffective [Unknown]
  - Drug ineffective [Not Recovered/Not Resolved]
